FAERS Safety Report 24011316 (Version 2)
Quarter: 2024Q3

REPORT INFORMATION
  Report Type: Spontaneous
  Country: US (occurrence: US)
  Receive Date: 20240625
  Receipt Date: 20240731
  Transmission Date: 20241017
  Serious: No
  Sender: NOVARTIS
  Company Number: US-002147023-NVSC2024US132299

PATIENT
  Sex: Female

DRUGS (1)
  1. TASIGNA [Suspect]
     Active Substance: NILOTINIB
     Indication: Product used for unknown indication
     Dosage: 150 MG, BID ( 150 MG IN THE MORNING AND 150 MG AT NIGHT)
     Route: 065

REACTIONS (3)
  - Dyspepsia [Unknown]
  - Fluid retention [Unknown]
  - Product prescribing issue [Unknown]
